FAERS Safety Report 21949857 (Version 3)
Quarter: 2023Q2

REPORT INFORMATION
  Report Type: Spontaneous
  Country: US (occurrence: US)
  Receive Date: 20230203
  Receipt Date: 20230411
  Transmission Date: 20230722
  Serious: Yes (Hospitalization, Other)
  Sender: FDA-Public Use
  Company Number: US-GSKCCFUS-Case-01611680_AE-91057

PATIENT

DRUGS (3)
  1. BREO ELLIPTA [Suspect]
     Active Substance: FLUTICASONE FUROATE\VILANTEROL TRIFENATATE
     Indication: Chronic obstructive pulmonary disease
     Dosage: 1 PUFF(S), MO (200/25MCG )
     Route: 055
  2. ALBUTEROL [Concomitant]
     Active Substance: ALBUTEROL
     Indication: Product used for unknown indication
     Dosage: UNK
  3. MORPHINE [Concomitant]
     Active Substance: MORPHINE
     Indication: Pain
     Dosage: UNK, GIVEN IN HOSPITAL

REACTIONS (11)
  - Chronic obstructive pulmonary disease [Unknown]
  - Gastrointestinal disorder [Unknown]
  - Pulmonary hypertension [Unknown]
  - Atelectasis [Unknown]
  - Anxiety [Unknown]
  - Asthenia [Unknown]
  - Device use error [Unknown]
  - Inappropriate schedule of product administration [Unknown]
  - Product storage error [Unknown]
  - Drug ineffective [Unknown]
  - Product complaint [Unknown]
